FAERS Safety Report 16001550 (Version 2)
Quarter: 2019Q2

REPORT INFORMATION
  Report Type: Spontaneous
  Country: JP (occurrence: JP)
  Receive Date: 20190225
  Receipt Date: 20190501
  Transmission Date: 20190711
  Serious: Yes (Other)
  Sender: FDA-Public Use
  Company Number: JP-PFIZER INC-2019073973

PATIENT
  Sex: Female

DRUGS (2)
  1. LORBRENA [Suspect]
     Active Substance: LORLATINIB
     Indication: LUNG NEOPLASM MALIGNANT
     Dosage: 100 MG, DAILY, 2 WEEKS ON, 2 WEEKS OFF
     Route: 048
  2. ALECENSA [Suspect]
     Active Substance: ALECTINIB HYDROCHLORIDE
     Dosage: UNK,ON 2 WEEKS AND OFF ON 2 WEEKS

REACTIONS (3)
  - Arrhythmia [Recovered/Resolved]
  - Blood cholesterol increased [Unknown]
  - Neoplasm progression [Unknown]
